FAERS Safety Report 10027787 (Version 2)
Quarter: 2014Q1

REPORT INFORMATION
  Report Type: Spontaneous
  Country: US (occurrence: US)
  Receive Date: 20140321
  Receipt Date: 20140331
  Transmission Date: 20141002
  Serious: No
  Sender: FDA-Public Use
  Company Number: US-009507513-1403USA002837

PATIENT
  Age: 73 Year
  Sex: Female
  Weight: 58.96 kg

DRUGS (7)
  1. OXYTROL FOR WOMEN [Suspect]
     Indication: NOCTURIA
     Dosage: 1 DF, Q4D
     Route: 062
     Dates: start: 201312, end: 201403
  2. OXYTROL FOR WOMEN [Suspect]
     Indication: HYPERTONIC BLADDER
  3. LISINOPRIL [Concomitant]
     Indication: HYPERTENSION
     Dosage: UNK, UNKNOWN
  4. METOPROLOL [Concomitant]
     Indication: HYPERTENSION
     Dosage: UNK, UNKNOWN
  5. PANTOPRAZOLE [Concomitant]
     Indication: GASTROOESOPHAGEAL REFLUX DISEASE
     Dosage: UNK, UNKNOWN
  6. CHOLECALCIFEROL [Concomitant]
     Indication: OSTEOPOROSIS
     Dosage: 2000 IU, UNKNOWN
  7. BAYER LOW STRENGTH ASPIRIN REGIMEN [Concomitant]
     Indication: MYOCARDIAL INFARCTION
     Dosage: 81 MG, UNKNOWN

REACTIONS (2)
  - Application site erythema [Recovering/Resolving]
  - Drug effect decreased [Unknown]
